FAERS Safety Report 23365740 (Version 1)
Quarter: 2024Q1

REPORT INFORMATION
  Report Type: Spontaneous
  Country: FR (occurrence: FR)
  Receive Date: 20240104
  Receipt Date: 20240104
  Transmission Date: 20240410
  Serious: Yes (Death, Other)
  Sender: FDA-Public Use
  Company Number: FR-AMGEN-FRASP2023230710

PATIENT

DRUGS (2)
  1. FILGRASTIM [Suspect]
     Active Substance: FILGRASTIM
     Indication: Hormone-refractory prostate cancer
     Dosage: UNK
     Route: 065
  2. DOCETAXEL [Concomitant]
     Active Substance: DOCETAXEL\DOCETAXEL ANHYDROUS

REACTIONS (11)
  - Febrile neutropenia [Fatal]
  - Cardiopulmonary failure [Fatal]
  - General physical health deterioration [Fatal]
  - Hormone-refractory prostate cancer [Unknown]
  - Neutropenia [Unknown]
  - Infection [Unknown]
  - Musculoskeletal disorder [Unknown]
  - Septic shock [Unknown]
  - Fatigue [Unknown]
  - Diarrhoea [Unknown]
  - Sepsis [Unknown]
